FAERS Safety Report 10152105 (Version 1)
Quarter: 2014Q2

REPORT INFORMATION
  Report Type: Spontaneous
  Country: US (occurrence: US)
  Receive Date: 20140505
  Receipt Date: 20140505
  Transmission Date: 20141212
  Serious: Yes (Death, Hospitalization)
  Sender: FDA-Public Use
  Company Number: US-ASTELLAS-2014US004686

PATIENT
  Age: 68 Year
  Sex: Male

DRUGS (2)
  1. TARCEVA [Suspect]
     Indication: PRODUCT USED FOR UNKNOWN INDICATION
     Route: 048
  2. TARCEVA [Suspect]
     Route: 048
     Dates: start: 20140114

REACTIONS (2)
  - Death [Fatal]
  - Drug hypersensitivity [Unknown]
